FAERS Safety Report 9881034 (Version 1)
Quarter: 2014Q1

REPORT INFORMATION
  Report Type: Spontaneous
  Country: DE (occurrence: None)
  Receive Date: 20140205
  Receipt Date: 20140205
  Transmission Date: 20141002
  Serious: Yes (Death, Other)
  Sender: FDA-Public Use
  Company Number: 2014STPI000027

PATIENT
  Age: 80 Year
  Sex: Female

DRUGS (5)
  1. MATULANE [Suspect]
     Route: 048
  2. METHOTREXATE [Suspect]
     Indication: CENTRAL NERVOUS SYSTEM LYMPHOMA
     Dosage: 3G/M2, UK, INTRAVENOUS
     Route: 042
  3. RITUXIMAB [Suspect]
     Indication: CENTRAL NERVOUS SYSTEM LYMPHOMA
     Route: 042
  4. LOMUSTINE [Suspect]
     Route: 048
  5. FOLINIC ACID [Suspect]
     Indication: PROPHYLAXIS

REACTIONS (3)
  - Large intestine perforation [None]
  - Disease progression [None]
  - Diverticular perforation [None]
